FAERS Safety Report 7760677-X (Version None)
Quarter: 2011Q3

REPORT INFORMATION
  Report Type: 
  Country: None (occurrence: None)
  Receive Date: 20110919
  Receipt Date: 20110909
  Transmission Date: 20111222
  Serious: Yes (Hospitalization)
  Sender: FDA-Public Use
  Company Number: FR-ASTRAZENECA-2011SE54971

PATIENT
  Age: 41 Year
  Sex: Female

DRUGS (8)
  1. NEXIUM [Suspect]
     Route: 048
  2. REMICADE [Suspect]
     Indication: PSORIATIC ARTHROPATHY
     Dosage: 250 MG EVERY 8 WEEKS
     Route: 042
     Dates: start: 20090331, end: 20110301
  3. KETOPROFEN [Suspect]
     Indication: PSORIATIC ARTHROPATHY
     Route: 048
  4. MYOLASTAN [Suspect]
     Indication: PSORIATIC ARTHROPATHY
     Route: 048
  5. LAMALINE [Concomitant]
  6. SPECIALFOLDINE [Concomitant]
  7. METHOTREXATE SODIUM [Suspect]
     Indication: PSORIATIC ARTHROPATHY
     Route: 058
  8. CYMBALTA [Suspect]
     Indication: PSORIATIC ARTHROPATHY
     Route: 048

REACTIONS (4)
  - GAIT DISTURBANCE [None]
  - MALAISE [None]
  - STRABISMUS [None]
  - FALL [None]
